FAERS Safety Report 6527812-2 (Version None)
Quarter: 2010Q1

REPORT INFORMATION
  Report Type: 
  Country: None (occurrence: None)
  Receive Date: 20100106
  Receipt Date: 20091223
  Transmission Date: 20100710
  Serious: Yes (Hospitalization)
  Sender: FDA-Public Use
  Company Number: AU-ROCHE-676326

PATIENT
  Sex: Male
  Weight: 116 kg

DRUGS (11)
  1. METHOXY POLYETHYLENE GLYCOL-EPOETIN BETA [Suspect]
     Dosage: DOSAGE FORM: INJECTION, LAST DOSE PRIOR TO SAE 30 OCTOBER 2009
     Route: 058
     Dates: start: 20090731
  2. FRUSEMIDE [Concomitant]
     Dates: start: 20031121
  3. LANTUS [Concomitant]
     Dosage: DRUG NAME: LANCTUS SOLOSTAR, DOSE: 46 U/S
     Dates: start: 20071203
  4. ATORVASTATIN CALCIUM [Concomitant]
     Dates: start: 20080820
  5. LEXAPRO [Concomitant]
     Dates: start: 20080820
  6. PRAZOSIN HYDROCHLORIDE [Concomitant]
     Dates: start: 20081008
  7. BICOR [Concomitant]
     Dates: start: 20081008
  8. ASPIRIN [Concomitant]
     Dates: start: 20040213
  9. NOVORAPID [Concomitant]
  10. ALLOPURINOL [Concomitant]
     Dates: start: 20051108
  11. DOXYLIN [Concomitant]
     Dates: start: 20091024

REACTIONS (1)
  - GASTROINTESTINAL CARCINOMA [None]
